FAERS Safety Report 24723293 (Version 2)
Quarter: 2025Q1

REPORT INFORMATION
  Report Type: Spontaneous
  Country: JP (occurrence: JP)
  Receive Date: 20241211
  Receipt Date: 20250226
  Transmission Date: 20250408
  Serious: Yes (Other)
  Sender: PFIZER
  Company Number: JP-PFIZER INC-202400321559

PATIENT
  Age: 32 Year
  Sex: Female

DRUGS (1)
  1. SUTENT [Suspect]
     Active Substance: SUNITINIB MALATE
     Indication: Gastrointestinal stromal tumour
     Route: 048

REACTIONS (6)
  - Orbital myositis [Unknown]
  - Optic glioma [Unknown]
  - Retinopathy hypertensive [Unknown]
  - Hypothyroidism [Unknown]
  - Eye disorder [Unknown]
  - Hypertension [Unknown]
